FAERS Safety Report 7001615-7 (Version None)
Quarter: 2010Q3

REPORT INFORMATION
  Report Type: 
  Country: None (occurrence: None)
  Receive Date: 20100916
  Receipt Date: 20100831
  Transmission Date: 20110219
  Serious: Yes (Hospitalization)
  Sender: FDA-Public Use
  Company Number: 018147

PATIENT
  Sex: Female
  Weight: 50 kg

DRUGS (1)
  1. CIMZIA [Suspect]
     Indication: CROHN'S DISEASE
     Dosage: (TWO INJECTIONS EVERY 4 WEEKS SUBCUTANEOUS)
     Route: 058
     Dates: start: 20100101

REACTIONS (4)
  - ABSCESS [None]
  - RASH [None]
  - RECTAL ABSCESS [None]
  - STAPHYLOCOCCAL INFECTION [None]
